FAERS Safety Report 4607273-0 (Version None)
Quarter: 2005Q1

REPORT INFORMATION
  Report Type: 
  Country: None (occurrence: None)
  Receive Date: 20050309
  Receipt Date: 20050225
  Transmission Date: 20050727
  Serious: Yes (Death)
  Sender: FDA-Public Use
  Company Number: DE-2005-002760

PATIENT
  Sex: Male

DRUGS (3)
  1. ULTRAVIST 370 [Suspect]
     Indication: ARTERIOGRAM CORONARY
     Dosage: 1 DOSE
     Dates: start: 20050224, end: 20050224
  2. ULTRAVIST 370 [Suspect]
  3. ULTRAVIST 370 [Suspect]

REACTIONS (4)
  - ARTERIOSPASM CORONARY [None]
  - CARDIAC PROCEDURE COMPLICATION [None]
  - CONTRAST MEDIA REACTION [None]
  - RESUSCITATION [None]
